FAERS Safety Report 12365328 (Version 1)
Quarter: 2016Q2

REPORT INFORMATION
  Report Type: Spontaneous
  Country: US (occurrence: None)
  Receive Date: 20160512
  Receipt Date: 20160512
  Transmission Date: 20160815
  Serious: No
  Sender: FDA-Public Use
  Company Number: None

PATIENT
  Sex: Female

DRUGS (9)
  1. LASIX [Concomitant]
     Active Substance: FUROSEMIDE
  2. MULTI-VITE [Concomitant]
  3. CRESTOR [Concomitant]
     Active Substance: ROSUVASTATIN CALCIUM
  4. VALSARTAN. [Concomitant]
     Active Substance: VALSARTAN
  5. METFORMIN [Concomitant]
     Active Substance: METFORMIN HYDROCHLORIDE
  6. ADCIRCA [Suspect]
     Active Substance: TADALAFIL
     Indication: PULMONARY FIBROSIS
     Route: 048
     Dates: start: 20150808
  7. VICTOZA [Concomitant]
     Active Substance: LIRAGLUTIDE
  8. LETAIRIS [Concomitant]
     Active Substance: AMBRISENTAN
  9. VITAMIN D3 [Concomitant]
     Active Substance: CHOLECALCIFEROL

REACTIONS (2)
  - Headache [None]
  - Swelling [None]

NARRATIVE: CASE EVENT DATE: 2016
